FAERS Safety Report 17936562 (Version 2)
Quarter: 2020Q3

REPORT INFORMATION
  Report Type: Spontaneous
  Country: AT (occurrence: AT)
  Receive Date: 20200624
  Receipt Date: 20200805
  Transmission Date: 20201103
  Serious: Yes (Life-Threatening)
  Sender: FDA-Public Use
  Company Number: AT-ASTELLAS-2020US021527

PATIENT
  Sex: Female

DRUGS (4)
  1. DEXIBUPROFEN [Concomitant]
     Active Substance: DEXIBUPROFEN
     Indication: PRODUCT USED FOR UNKNOWN INDICATION
     Route: 065
  2. GILTERITINIB [Suspect]
     Active Substance: GILTERITINIB
     Indication: ACUTE MYELOID LEUKAEMIA RECURRENT
     Route: 048
     Dates: start: 20200224, end: 20200608
  3. GILTERITINIB [Suspect]
     Active Substance: GILTERITINIB
     Indication: FMS-LIKE TYROSINE KINASE 3 POSITIVE
     Route: 048
     Dates: start: 20200609, end: 20200609
  4. ENALAPRIL [Concomitant]
     Active Substance: ENALAPRIL
     Indication: PRODUCT USED FOR UNKNOWN INDICATION
     Route: 065

REACTIONS (2)
  - Drug ineffective [Unknown]
  - Blast cells present [Unknown]

NARRATIVE: CASE EVENT DATE: 20200609
